FAERS Safety Report 8959818 (Version 3)
Quarter: 2012Q4

REPORT INFORMATION
  Report Type: 
  Country: AU (occurrence: AU)
  Receive Date: 20121211
  Receipt Date: 20121224
  Transmission Date: 20130627
  Serious: Yes (Hospitalization)
  Sender: FDA-Public Use
  Company Number: AU-AMGEN-AUSSP2012078734

PATIENT
  Age: 69 Year
  Sex: Female

DRUGS (5)
  1. PROLIA [Suspect]
     Indication: PRODUCT USED FOR UNKNOWN INDICATION
     Dosage: UNK
     Dates: start: 20121126
  2. FELODUR [Concomitant]
     Indication: BLOOD PRESSURE ABNORMAL
     Dosage: UNK
  3. NOTEN [Concomitant]
     Indication: BLOOD PRESSURE
     Dosage: UNK
  4. VITAMIN D                          /00318501/ [Concomitant]
     Dosage: UNK
  5. ASPIRIN [Concomitant]
     Dosage: 100 mg, qd
     Dates: end: 20121201

REACTIONS (6)
  - Epistaxis [Recovered/Resolved]
  - Eye pain [Unknown]
  - Vision blurred [Unknown]
  - Peripheral coldness [Unknown]
  - Feeling hot [Unknown]
  - Bone pain [Unknown]
